FAERS Safety Report 9437984 (Version 1)
Quarter: 2013Q3

REPORT INFORMATION
  Report Type: Spontaneous
  Country: US (occurrence: US)
  Receive Date: 20130802
  Receipt Date: 20130802
  Transmission Date: 20140515
  Serious: No
  Sender: FDA-Public Use
  Company Number: US-BRISTOL-MYERS SQUIBB COMPANY-18921585

PATIENT
  Sex: 0

DRUGS (3)
  1. COUMADIN [Suspect]
     Dosage: 0.112MCG TWICE PER WEEK
  2. WARFARIN [Suspect]
  3. LEVOXYL [Concomitant]
     Dosage: 0.112 MCG TWICE WEEKLY

REACTIONS (1)
  - Drug ineffective [Unknown]
